FAERS Safety Report 5767120-0 (Version None)
Quarter: 2008Q2

REPORT INFORMATION
  Report Type: 
  Country: None (occurrence: None)
  Receive Date: 20080612
  Receipt Date: 20080602
  Transmission Date: 20081010
  Serious: Yes (Other)
  Sender: FDA-Public Use
  Company Number: NL-JNJFOC-20080503604

PATIENT
  Sex: Male

DRUGS (11)
  1. RISPERDAL [Suspect]
     Indication: BIPOLAR DISORDER
  2. ZOLPIDEM TARTRATE [Concomitant]
  3. TRIHEXYPHENIDYL HCL [Concomitant]
  4. LEVOTHYROXINE SODIUM [Concomitant]
  5. OXAZEPAM [Concomitant]
  6. LITHIUM CARBONATE [Concomitant]
  7. PERINDOPRIL [Concomitant]
  8. ACENOCOUMAROL [Concomitant]
  9. FUROSEMIDE [Concomitant]
  10. ATORVASTATIN [Concomitant]
  11. AMIODARONE HCL [Concomitant]

REACTIONS (3)
  - CARDIAC FAILURE [None]
  - OEDEMA [None]
  - WEIGHT INCREASED [None]
